FAERS Safety Report 20591624 (Version 1)
Quarter: 2022Q1

REPORT INFORMATION
  Report Type: Spontaneous
  Country: US (occurrence: US)
  Receive Date: 20220314
  Receipt Date: 20220314
  Transmission Date: 20220424
  Serious: Yes (Hospitalization)
  Sender: FDA-Public Use
  Company Number: US-PFIZER INC-202200354780

PATIENT
  Age: 86 Year
  Sex: Male
  Weight: 74.4 kg

DRUGS (5)
  1. BUMETANIDE [Suspect]
     Active Substance: BUMETANIDE
     Indication: Cardiac failure congestive
     Dosage: 6 MG, 1X/DAY
     Route: 042
     Dates: start: 2022, end: 2022
  2. BUMETANIDE [Suspect]
     Active Substance: BUMETANIDE
     Indication: Cardiac failure congestive
     Dosage: IN THE MORNING AND THE EVENING
     Route: 048
     Dates: end: 2022
  3. VITAMIN D3 [Concomitant]
     Active Substance: CHOLECALCIFEROL
     Dosage: 2 MG, 1X/DAY
  4. AMIODARONE [Concomitant]
     Active Substance: AMIODARONE
     Dosage: 200 MG, 2X/DAY
  5. ELIQUIS [Concomitant]
     Active Substance: APIXABAN
     Dosage: 50 MG, 1X/DAY

REACTIONS (3)
  - Cardiac failure congestive [Not Recovered/Not Resolved]
  - Deafness [Not Recovered/Not Resolved]
  - Toxicity to various agents [Not Recovered/Not Resolved]

NARRATIVE: CASE EVENT DATE: 20220101
